FAERS Safety Report 4519270-4 (Version None)
Quarter: 2004Q4

REPORT INFORMATION
  Report Type: 
  Country: None (occurrence: None)
  Receive Date: 20041206
  Receipt Date: 20040906
  Transmission Date: 20050328
  Serious: Yes (Hospitalization, Disabling, Other)
  Sender: FDA-Public Use
  Company Number: JP-BRISTOL-MYERS SQUIBB COMPANY-12700084

PATIENT
  Age: 72 Year
  Sex: Female

DRUGS (3)
  1. SINEMET [Suspect]
     Indication: PARKINSON'S DISEASE
     Route: 048
     Dates: start: 20020101
  2. RISPERIDONE [Concomitant]
     Dates: start: 20031001, end: 20031001
  3. BROMOCRIPTINE MESYLATE [Concomitant]
     Dates: start: 20031001, end: 20031001

REACTIONS (9)
  - ANOREXIA [None]
  - BRADYKINESIA [None]
  - COGNITIVE DISORDER [None]
  - CONDITION AGGRAVATED [None]
  - DEAFNESS BILATERAL [None]
  - HALLUCINATION, VISUAL [None]
  - PANIC ATTACK [None]
  - PARKINSON'S DISEASE [None]
  - TORTICOLLIS [None]
